FAERS Safety Report 13715586 (Version 6)
Quarter: 2018Q2

REPORT INFORMATION
  Report Type: Report from Study
  Country: JP (occurrence: JP)
  Receive Date: 20170705
  Receipt Date: 20180426
  Transmission Date: 20180711
  Serious: Yes (Death, Life-Threatening, Hospitalization, Other)
  Sender: FDA-Public Use
  Company Number: JP-BRISTOL-MYERS SQUIBB COMPANY-BMS-2016-109777

PATIENT
  Age: 37 Year
  Sex: Female

DRUGS (3)
  1. YERVOY [Suspect]
     Active Substance: IPILIMUMAB
     Indication: MALIGNANT MELANOMA
     Dosage: 280 MG, Q3WK
     Route: 065
     Dates: start: 20170426, end: 20170517
  2. BILASTINE [Concomitant]
     Active Substance: BILASTINE
     Indication: PRODUCT USED FOR UNKNOWN INDICATION
     Dosage: UNK
     Route: 065
     Dates: start: 20170301, end: 201705
  3. NIVOLUMAB [Suspect]
     Active Substance: NIVOLUMAB
     Indication: MALIGNANT MELANOMA
     Dosage: 3 MG/KG, (280MG) UNK
     Route: 041
     Dates: start: 20161214, end: 20170405

REACTIONS (9)
  - Malignant neoplasm progression [Fatal]
  - Histiocytosis haematophagic [Recovering/Resolving]
  - Hypothyroidism [Not Recovered/Not Resolved]
  - Enteritis [Unknown]
  - Infusion related reaction [Recovered/Resolved]
  - Hyperthyroidism [Recovered/Resolved]
  - Lymphadenopathy [Unknown]
  - Hepatic function abnormal [Recovered/Resolved]
  - Hepatosplenomegaly [Unknown]

NARRATIVE: CASE EVENT DATE: 20161214
